FAERS Safety Report 13571241 (Version 1)
Quarter: 2017Q2

REPORT INFORMATION
  Report Type: Spontaneous
  Country: US (occurrence: US)
  Receive Date: 20170523
  Receipt Date: 20170523
  Transmission Date: 20170830
  Serious: No
  Sender: FDA-Public Use
  Company Number: US-009507513-1704USA012539

PATIENT
  Age: 68 Year
  Sex: Female

DRUGS (1)
  1. BELSOMRA [Suspect]
     Active Substance: SUVOREXANT
     Indication: INSOMNIA
     Dosage: 10MG DAILY
     Route: 048
     Dates: start: 20170323, end: 20170402

REACTIONS (2)
  - Drug ineffective [Unknown]
  - Dental care [Unknown]

NARRATIVE: CASE EVENT DATE: 20170323
